FAERS Safety Report 4841412-1 (Version None)
Quarter: 2005Q4

REPORT INFORMATION
  Report Type: 
  Country: None (occurrence: None)
  Receive Date: 20051130
  Receipt Date: 20051121
  Transmission Date: 20060501
  Serious: Yes (Other)
  Sender: FDA-Public Use
  Company Number: AU-MERCK-0511AUS00308

PATIENT
  Sex: Female

DRUGS (2)
  1. FOSAMAX [Suspect]
     Indication: OSTEOPOROSIS
     Route: 048
     Dates: start: 20010101
  2. FOSAMAX [Suspect]
     Route: 048
     Dates: start: 19950101, end: 20010101

REACTIONS (4)
  - ARTHROPATHY [None]
  - BONE DENSITY DECREASED [None]
  - HIP ARTHROPLASTY [None]
  - SPINAL FRACTURE [None]
